FAERS Safety Report 10310762 (Version 1)
Quarter: 2014Q3

REPORT INFORMATION
  Report Type: Spontaneous
  Country: US (occurrence: US)
  Receive Date: 20140717
  Receipt Date: 20140717
  Transmission Date: 20150326
  Serious: Yes (Hospitalization, Other)
  Sender: FDA-Public Use
  Company Number: US-SA-2014SA093680

PATIENT
  Age: 56 Year
  Sex: Female

DRUGS (25)
  1. AMBIEN [Suspect]
     Active Substance: ZOLPIDEM TARTRATE
     Indication: SLEEP DISORDER
     Route: 065
  2. CETIRIZINE HYDROCHLORIDE. [Concomitant]
     Active Substance: CETIRIZINE HYDROCHLORIDE
  3. LOVASTATIN. [Concomitant]
     Active Substance: LOVASTATIN
  4. VENTOLIN [Suspect]
     Active Substance: ALBUTEROL SULFATE
     Indication: DYSPNOEA
     Dosage: FROM- 2007 OR 2008
     Route: 055
  5. DETROL [Concomitant]
     Active Substance: TOLTERODINE TARTRATE
  6. NYSTATIN. [Concomitant]
     Active Substance: NYSTATIN
  7. MULTIVITAMINS [Concomitant]
     Active Substance: VITAMINS
  8. XANAX [Suspect]
     Active Substance: ALPRAZOLAM
     Dosage: DOSE- 5 TIMES A DAY
     Route: 065
  9. ADVAIR HFA [Suspect]
     Active Substance: FLUTICASONE PROPIONATE\SALMETEROL XINAFOATE
     Indication: CHRONIC OBSTRUCTIVE PULMONARY DISEASE
     Dosage: DOSE-250/50 MCG
     Route: 065
     Dates: start: 20120623
  10. VENTOLIN [Suspect]
     Active Substance: ALBUTEROL SULFATE
     Indication: DYSPNOEA
     Route: 055
     Dates: start: 20120623
  11. CITALOPRAM [Concomitant]
     Active Substance: CITALOPRAM HYDROBROMIDE
  12. BUPROPION HYDROCHLORIDE. [Concomitant]
     Active Substance: BUPROPION HYDROCHLORIDE
  13. SPIRIVA [Concomitant]
     Active Substance: TIOTROPIUM BROMIDE MONOHYDRATE
  14. STOOL SOFTENER [Concomitant]
     Active Substance: DOCUSATE CALCIUM
  15. AMBIEN [Suspect]
     Active Substance: ZOLPIDEM TARTRATE
     Indication: SLEEP DISORDER
     Route: 065
  16. ADVAIR HFA [Suspect]
     Active Substance: FLUTICASONE PROPIONATE\SALMETEROL XINAFOATE
     Indication: CHRONIC OBSTRUCTIVE PULMONARY DISEASE
     Dosage: DOSE:1 PUFF(S)
     Route: 055
     Dates: start: 2004
  17. XANAX [Suspect]
     Active Substance: ALPRAZOLAM
     Route: 065
  18. ALL OTHER THERAPEUTIC PRODUCTS [Concomitant]
     Active Substance: UNSPECIFIED INGREDIENT
  19. VERAPAMIL [Concomitant]
     Active Substance: VERAPAMIL HYDROCHLORIDE
  20. ALBUTEROL SULFATE. [Concomitant]
     Active Substance: ALBUTEROL SULFATE
  21. FLONASE [Suspect]
     Active Substance: FLUTICASONE PROPIONATE
     Indication: RHINITIS ALLERGIC
     Dosage: DOSE- 1 SPRAY
     Route: 045
     Dates: start: 2004, end: 2013
  22. ESOMEPRAZOLE [Concomitant]
     Active Substance: ESOMEPRAZOLE
  23. FLUTICASONE [Suspect]
     Active Substance: FLUTICASONE\FLUTICASONE PROPIONATE
     Indication: RHINITIS ALLERGIC
     Dosage: DOSE- 1 SPRAY
     Route: 045
     Dates: start: 20120727
  24. OXYBUTYNIN [Concomitant]
     Active Substance: OXYBUTYNIN
  25. MUPIROCIN. [Concomitant]
     Active Substance: MUPIROCIN

REACTIONS (16)
  - Chest discomfort [Recovered/Resolved]
  - Panic attack [Recovered/Resolved]
  - Adverse event [Unknown]
  - Pleural effusion [Recovered/Resolved]
  - Fall [Unknown]
  - Incorrect dosage administered [Unknown]
  - Oxygen saturation decreased [Recovered/Resolved]
  - Hip fracture [Unknown]
  - Burning sensation [Unknown]
  - Drug dose omission [Unknown]
  - Drug intolerance [Unknown]
  - Respiratory disorder [Recovered/Resolved]
  - Loss of consciousness [Recovered/Resolved]
  - Memory impairment [Unknown]
  - Thermal burn [Unknown]
  - Scab [Unknown]

NARRATIVE: CASE EVENT DATE: 201310
